FAERS Safety Report 19577157 (Version 2)
Quarter: 2021Q3

REPORT INFORMATION
  Report Type: Report from Study
  Country: US (occurrence: US)
  Receive Date: 20210719
  Receipt Date: 20210902
  Transmission Date: 20211014
  Serious: No
  Sender: FDA-Public Use
  Company Number: NVSC2021US154667

PATIENT
  Sex: Male

DRUGS (1)
  1. ENTRESTO [Suspect]
     Active Substance: SACUBITRIL\VALSARTAN
     Indication: CARDIAC FAILURE
     Dosage: 1 DF, BID(24/26 MG)
     Route: 048
     Dates: start: 202103

REACTIONS (4)
  - Energy increased [Unknown]
  - Weight fluctuation [Unknown]
  - Cardiac disorder [Unknown]
  - Hypotension [Unknown]
